FAERS Safety Report 12003890 (Version 1)
Quarter: 2016Q1

REPORT INFORMATION
  Report Type: Spontaneous
  Country: US (occurrence: US)
  Receive Date: 20160204
  Receipt Date: 20160204
  Transmission Date: 20160526
  Serious: Yes (Hospitalization)
  Sender: FDA-Public Use
  Company Number: US-ASTRAZENECA-2016SE09672

PATIENT
  Age: 43 Year
  Sex: Male

DRUGS (2)
  1. FARXIGA [Suspect]
     Active Substance: DAPAGLIFLOZIN PROPANEDIOL
     Route: 048
  2. METFORMIN [Suspect]
     Active Substance: METFORMIN HYDROCHLORIDE
     Indication: BLOOD GLUCOSE INCREASED
     Dosage: NON AZ DRUG
     Route: 065

REACTIONS (6)
  - Gastrointestinal tract irritation [Unknown]
  - Hypophagia [Unknown]
  - Pancreatitis [Unknown]
  - Abdominal pain upper [Unknown]
  - Malaise [Unknown]
  - Ketoacidosis [Unknown]
